FAERS Safety Report 7208237-3 (Version None)
Quarter: 2011Q1

REPORT INFORMATION
  Report Type: 
  Country: None (occurrence: None)
  Receive Date: 20110104
  Receipt Date: 20101231
  Transmission Date: 20110831
  Serious: Yes (Life-Threatening, Hospitalization)
  Sender: FDA-Public Use
  Company Number: PL-BRISTOL-MYERS SQUIBB COMPANY-15202096

PATIENT
  Age: 44 Year
  Sex: Male

DRUGS (7)
  1. LORAZEPAM [Concomitant]
     Dates: start: 20100711, end: 20100712
  2. PROMAZINE HYDROCHLORIDE [Concomitant]
  3. RELANIUM [Concomitant]
  4. ARIPIPRAZOLE [Suspect]
     Indication: SCHIZOPHRENIA
     Dosage: 29JUN-05JL10;DOSE:5MG;06JL-13JL10 DS:10MG,THERPDT:7DY;13JL-14JL10 DS:20MG,TD:2DY.INTERPD 15JUL10
     Route: 048
     Dates: start: 20100629, end: 20100714
  5. HALOPERIDOL [Concomitant]
     Dates: start: 20100713, end: 20100714
  6. ZOLAFREN [Concomitant]
     Dates: start: 20100610, end: 20100713
  7. TRILAFON [Concomitant]

REACTIONS (4)
  - COMA [None]
  - PSYCHOTIC DISORDER [None]
  - SUICIDE ATTEMPT [None]
  - ACUTE RESPIRATORY FAILURE [None]
